FAERS Safety Report 10213385 (Version 1)
Quarter: 2014Q2

REPORT INFORMATION
  Report Type: Spontaneous
  Country: US (occurrence: None)
  Receive Date: 20140530
  Receipt Date: 20140530
  Transmission Date: 20141212
  Serious: No
  Sender: FDA-Public Use
  Company Number: None

PATIENT
  Age: 03 Year
  Sex: Male
  Weight: 13.61 kg

DRUGS (1)
  1. CHILDREN^S ACETAMINOPHEN [Suspect]
     Indication: VOMITING
     Dosage: T TEASPOONFUL
     Route: 048

REACTIONS (4)
  - Dysgeusia [None]
  - Feeling hot [None]
  - Product container issue [None]
  - Product quality issue [None]
